FAERS Safety Report 16531431 (Version 1)
Quarter: 2019Q3

REPORT INFORMATION
  Report Type: Spontaneous
  Country: JP (occurrence: JP)
  Receive Date: 20190705
  Receipt Date: 20190705
  Transmission Date: 20191004
  Serious: Yes (Other)
  Sender: FDA-Public Use
  Company Number: JP-PFIZER INC-2019274325

PATIENT

DRUGS (1)
  1. SELARA 25MG [Suspect]
     Active Substance: EPLERENONE

REACTIONS (2)
  - Dysphagia [Unknown]
  - Pharyngeal neoplasm [Unknown]
